FAERS Safety Report 5238328-8 (Version None)
Quarter: 2007Q1

REPORT INFORMATION
  Report Type: 
  Country: None (occurrence: None)
  Receive Date: 20070212
  Receipt Date: 20070212
  Transmission Date: 20070707
  Serious: No
  Sender: FDA-Public Use
  Company Number: None

PATIENT

DRUGS (2)
  1. BENADRYL [Suspect]
     Indication: HERPES ZOSTER
     Dosage: SPRAY   3 OR 4 TIMES DAILY  TOP
     Route: 061
  2. BENADRYL [Suspect]
     Indication: PRURITUS
     Dosage: SPRAY   3 OR 4 TIMES DAILY  TOP
     Route: 061

REACTIONS (2)
  - CIRCUMSTANCE OR INFORMATION CAPABLE OF LEADING TO MEDICATION ERROR [None]
  - MEDICATION ERROR [None]
